FAERS Safety Report 5224120-7 (Version None)
Quarter: 2007Q1

REPORT INFORMATION
  Report Type: 
  Country: None (occurrence: None)
  Receive Date: 20070130
  Receipt Date: 20070118
  Transmission Date: 20070707
  Serious: Yes (Other)
  Sender: FDA-Public Use
  Company Number: US-JNJFOC-20070105614

PATIENT
  Sex: Female

DRUGS (5)
  1. LEVAQUIN [Suspect]
     Indication: SINUSITIS
     Route: 048
     Dates: start: 20061227, end: 20070106
  2. ALLEGRA-D 12 HOUR [Concomitant]
     Indication: SINUSITIS
     Route: 048
  3. ALEVE [Concomitant]
     Indication: PAIN
     Route: 048
  4. ZANTAC [Concomitant]
     Route: 048
  5. CLIMARA [Concomitant]
     Route: 048

REACTIONS (3)
  - NASAL DISCOMFORT [None]
  - SENSITIVITY OF TEETH [None]
  - TENDONITIS [None]
